FAERS Safety Report 4969016-0 (Version None)
Quarter: 2006Q2

REPORT INFORMATION
  Report Type: 
  Country: None (occurrence: None)
  Receive Date: 20060411
  Receipt Date: 20060331
  Transmission Date: 20061013
  Serious: Yes (Life-Threatening, Hospitalization, Disabling)
  Sender: FDA-Public Use
  Company Number: US-MERCK-0604USA00050

PATIENT
  Age: 52 Year
  Sex: Female

DRUGS (4)
  1. FOSAMAX [Suspect]
     Indication: OSTEOPENIA
     Route: 048
     Dates: start: 20050101, end: 20050101
  2. FOSAMAX [Suspect]
     Route: 048
     Dates: start: 20050401, end: 20050401
  3. VYTORIN [Concomitant]
     Route: 048
  4. NIACIN [Concomitant]
     Route: 065

REACTIONS (6)
  - DIARRHOEA [None]
  - GASTRITIS EROSIVE [None]
  - HALLUCINATION [None]
  - OESOPHAGEAL ULCER [None]
  - RENAL FAILURE [None]
  - SHOCK [None]
